FAERS Safety Report 24075875 (Version 1)
Quarter: 2024Q3

REPORT INFORMATION
  Report Type: Spontaneous
  Country: MX (occurrence: MX)
  Receive Date: 20240710
  Receipt Date: 20240710
  Transmission Date: 20241016
  Serious: Yes (Other)
  Sender: PURDUE
  Company Number: MX-NAPPMUNDI-GBR-2024-0117866

PATIENT
  Age: 8 Year
  Sex: Male

DRUGS (4)
  1. METHYLPHENIDATE HYDROCHLORIDE [Suspect]
     Active Substance: METHYLPHENIDATE HYDROCHLORIDE
     Indication: Attention deficit hyperactivity disorder
     Dosage: 10 MILLIGRAM, BID (FIRST DOSE AT 8 AM WITH BREAKFAST AND A SECOND DOSE 4 HOURS AFTER THE FIRST DOSE)
     Route: 048
  2. METHYLPHENIDATE HYDROCHLORIDE [Suspect]
     Active Substance: METHYLPHENIDATE HYDROCHLORIDE
     Dosage: 10 MILLIGRAM, DAILY (AT 8 AM WITH BREAKFAST)
     Route: 048
  3. FUROSEMIDE [Concomitant]
     Active Substance: FUROSEMIDE
     Indication: Cardiomegaly
     Dosage: 0.5 MG/KG BID
     Route: 065
  4. SPIRONOLACTONE [Concomitant]
     Active Substance: SPIRONOLACTONE
     Indication: Cardiomegaly
     Dosage: 0.5 MG/KG BID
     Route: 065

REACTIONS (1)
  - Pulmonary hypertension [Recovered/Resolved]
